FAERS Safety Report 13947632 (Version 1)
Quarter: 2017Q3

REPORT INFORMATION
  Report Type: Report from Study
  Country: JP (occurrence: JP)
  Receive Date: 20170908
  Receipt Date: 20170908
  Transmission Date: 20171128
  Serious: Yes (Death)
  Sender: FDA-Public Use
  Company Number: JP-UCBSA-2017035182

PATIENT
  Sex: Male
  Weight: 9.4 kg

DRUGS (7)
  1. LEVETIRACETAM. [Suspect]
     Active Substance: LEVETIRACETAM
     Indication: FOCAL DYSCOGNITIVE SEIZURES
     Dosage: 25 MG, 2X/DAY (BID)
     Route: 048
     Dates: start: 20150930, end: 20151103
  2. RIBALL [Concomitant]
     Active Substance: ALLOPURINOL
     Indication: FOCAL DYSCOGNITIVE SEIZURES
     Dosage: 25 MG, DAILY
     Route: 048
     Dates: end: 20170223
  3. LEVETIRACETAM. [Suspect]
     Active Substance: LEVETIRACETAM
     Dosage: 100 MG, 2X/DAY (BID)
     Route: 048
     Dates: start: 20160519, end: 20170223
  4. KREMEZIN [Concomitant]
     Active Substance: ACTIVATED CHARCOAL
     Indication: FOCAL DYSCOGNITIVE SEIZURES
     Dosage: 200 MG DAILY
     Route: 048
     Dates: end: 20170223
  5. LEVETIRACETAM. [Suspect]
     Active Substance: LEVETIRACETAM
     Dosage: 50 MG, 2X/DAY (BID)
     Route: 048
     Dates: start: 20151104, end: 20160518
  6. BENZALIN [Concomitant]
     Active Substance: NITRAZEPAM
     Indication: FOCAL DYSCOGNITIVE SEIZURES
     Dosage: 0.5 MG DAILY
     Route: 048
     Dates: end: 20170223
  7. SODIUM BICARBONATE. [Concomitant]
     Active Substance: SODIUM BICARBONATE
     Indication: PRODUCT USED FOR UNKNOWN INDICATION
     Route: 048
     Dates: end: 20170223

REACTIONS (1)
  - Death [Fatal]

NARRATIVE: CASE EVENT DATE: 2017
